FAERS Safety Report 4410511-0 (Version None)
Quarter: 2004Q3

REPORT INFORMATION
  Report Type: 
  Country: None (occurrence: None)
  Receive Date: 20040726
  Receipt Date: 20040715
  Transmission Date: 20050211
  Serious: Yes (Hospitalization)
  Sender: FDA-Public Use
  Company Number: 2002117348GB

PATIENT
  Age: 58 Year
  Sex: Female
  Weight: 65.8 kg

DRUGS (3)
  1. TAMOXIFEN CITRATE [Suspect]
     Indication: BREAST CANCER FEMALE
     Dosage: 20 MG, QD, ORAL
     Route: 048
     Dates: start: 19980610, end: 20000502
  2. QUININE SULPHATE [Concomitant]
  3. ASPIRIN [Concomitant]

REACTIONS (3)
  - HEPATIC STEATOSIS [None]
  - HEPATOTOXICITY [None]
  - PORPHYRIA NON-ACUTE [None]
